FAERS Safety Report 4391535-9 (Version None)
Quarter: 2004Q3

REPORT INFORMATION
  Report Type: 
  Country: None (occurrence: None)
  Receive Date: 20040701
  Receipt Date: 20040616
  Transmission Date: 20050211
  Serious: Yes (Hospitalization)
  Sender: FDA-Public Use
  Company Number: 2004-DE-03328GD

PATIENT
  Sex: Female

DRUGS (5)
  1. AZATHIOPRINE [Suspect]
     Indication: PROPHYLAXIS AGAINST TRANSPLANT REJECTION
  2. PREDNISONE TAB [Suspect]
     Indication: ANAEMIA HAEMOLYTIC AUTOIMMUNE
     Dosage: PO
     Route: 048
  3. ASPIRIN [Suspect]
     Indication: CORONARY ARTERY OCCLUSION
  4. ASPIRIN [Suspect]
     Indication: PROPHYLAXIS
  5. TACROLIMUS (TACROLIMUS) [Suspect]
     Indication: PROPHYLAXIS AGAINST TRANSPLANT REJECTION

REACTIONS (31)
  - ANAEMIA HAEMOLYTIC AUTOIMMUNE [None]
  - ANTINEUTROPHIL CYTOPLASMIC ANTIBODY POSITIVE [None]
  - BLOOD LACTATE DEHYDROGENASE INCREASED [None]
  - COLONIC POLYP [None]
  - CONGENITAL THROMBOCYTE DISORDER [None]
  - CONTUSION [None]
  - COOMBS DIRECT TEST POSITIVE [None]
  - DIARRHOEA [None]
  - GASTROENTERITIS VIRAL [None]
  - GASTROINTESTINAL DISORDER [None]
  - GASTROINTESTINAL HAEMORRHAGE [None]
  - GLUCOSE TOLERANCE IMPAIRED [None]
  - HAEMOLYSIS [None]
  - HIRSUTISM [None]
  - HYPERTENSION [None]
  - JAUNDICE [None]
  - LOWER GASTROINTESTINAL HAEMORRHAGE [None]
  - LYMPHADENOPATHY [None]
  - MUCOSAL HAEMORRHAGE [None]
  - MYELOID MATURATION ARREST [None]
  - NEUTROPENIA [None]
  - PALLOR [None]
  - PALPABLE PURPURA [None]
  - PETECHIAE [None]
  - PYREXIA [None]
  - RETICULOCYTE COUNT INCREASED [None]
  - SCLERITIS [None]
  - THROMBOCYTOPENIA [None]
  - VASCULITIC RASH [None]
  - VIRAL INFECTION [None]
  - VOMITING [None]
